FAERS Safety Report 5005364-6 (Version None)
Quarter: 2006Q2

REPORT INFORMATION
  Report Type: 
  Country: None (occurrence: None)
  Receive Date: 20060518
  Receipt Date: 20050908
  Transmission Date: 20061013
  Serious: Yes (Hospitalization, Disabling)
  Sender: FDA-Public Use
  Company Number: US-MERCK-0509USA01074

PATIENT
  Age: 61 Year
  Sex: Female
  Weight: 105 kg

DRUGS (8)
  1. VIOXX [Suspect]
     Indication: OSTEOARTHRITIS
     Route: 048
     Dates: start: 20010901, end: 20020101
  2. ASPIRIN [Concomitant]
     Indication: HEART RATE IRREGULAR
     Route: 065
  3. NORVASC [Concomitant]
     Route: 048
  4. INSULIN [Concomitant]
     Route: 058
  5. INSULIN [Concomitant]
     Route: 058
  6. PREMARIN [Concomitant]
     Route: 065
  7. ATENOLOL [Concomitant]
     Route: 065
  8. CLONIDINE [Concomitant]
     Route: 065

REACTIONS (34)
  - ACUTE CORONARY SYNDROME [None]
  - ANAEMIA [None]
  - ARRHYTHMIA [None]
  - ARTERIOSCLEROSIS [None]
  - ARTHRALGIA [None]
  - BLOOD CHOLESTEROL INCREASED [None]
  - CARDIAC FAILURE CONGESTIVE [None]
  - CARDIAC VALVE DISEASE [None]
  - CEREBROVASCULAR ACCIDENT [None]
  - CEREBROVASCULAR DISORDER [None]
  - CHOLELITHIASIS [None]
  - CORONARY ARTERY DISEASE [None]
  - COUGH [None]
  - DEPRESSION [None]
  - DIABETIC GASTROPARESIS [None]
  - DIARRHOEA [None]
  - DIZZINESS [None]
  - DYSPEPSIA [None]
  - DYSPNOEA [None]
  - GAIT DISTURBANCE [None]
  - GASTRIC DISORDER [None]
  - HEART RATE IRREGULAR [None]
  - HIATUS HERNIA [None]
  - HYPERLIPIDAEMIA [None]
  - ISCHAEMIC STROKE [None]
  - PEPTIC ULCER [None]
  - RHINITIS SEASONAL [None]
  - SINUS BRADYCARDIA [None]
  - SYNCOPE [None]
  - THYROID DISORDER [None]
  - TRANSIENT ISCHAEMIC ATTACK [None]
  - URGE INCONTINENCE [None]
  - URINARY TRACT INFECTION [None]
  - VENTRICULAR HYPERTROPHY [None]
